FAERS Safety Report 25244251 (Version 1)
Quarter: 2025Q2

REPORT INFORMATION
  Report Type: Spontaneous
  Country: US (occurrence: US)
  Receive Date: 20250428
  Receipt Date: 20250428
  Transmission Date: 20250716
  Serious: Yes (Other)
  Sender: UCB
  Company Number: US-UCBSA-2025024164

PATIENT
  Sex: Female
  Weight: 85.72 kg

DRUGS (1)
  1. CIMZIA [Suspect]
     Active Substance: CERTOLIZUMAB PEGOL
     Indication: Crohn^s disease
     Dosage: 400 MILLIGRAM, EV 4 WEEKS (1 YEAR 7 MONTHS OLD)
     Route: 058
     Dates: start: 2023

REACTIONS (2)
  - Breast cancer [Recovering/Resolving]
  - Sinus disorder [Not Recovered/Not Resolved]
